FAERS Safety Report 10355652 (Version 1)
Quarter: 2014Q3

REPORT INFORMATION
  Report Type: Spontaneous
  Country: PL (occurrence: PL)
  Receive Date: 20140731
  Receipt Date: 20140731
  Transmission Date: 20150326
  Serious: Yes (Hospitalization, Other)
  Sender: FDA-Public Use
  Company Number: PL-ASTRAZENECA-2014SE53781

PATIENT
  Age: 59 Year
  Sex: Male

DRUGS (8)
  1. KALIUM SUPPLEMENTATION [Concomitant]
  2. AMIODARON [Concomitant]
     Active Substance: AMIODARONE
  3. TELMISARTAN. [Concomitant]
     Active Substance: TELMISARTAN
  4. METOPROLOL SUCCINATE. [Suspect]
     Active Substance: METOPROLOL SUCCINATE
     Route: 048
  5. EPLERENON [Concomitant]
  6. FUROSEMIDE. [Concomitant]
     Active Substance: FUROSEMIDE
  7. TORASEMID [Concomitant]
     Active Substance: TORSEMIDE
  8. METOPROLOL SUCCINATE. [Suspect]
     Active Substance: METOPROLOL SUCCINATE
     Route: 048

REACTIONS (6)
  - Hypertension [Unknown]
  - Oedema peripheral [Unknown]
  - Tachycardia [Unknown]
  - Hyperthyroidism [Unknown]
  - Arrhythmia [Unknown]
  - Pulmonary vascular resistance abnormality [Unknown]
